FAERS Safety Report 5073652-3 (Version None)
Quarter: 2006Q3

REPORT INFORMATION
  Report Type: 
  Country: None (occurrence: None)
  Receive Date: 20060808
  Receipt Date: 20050301
  Transmission Date: 20061208
  Serious: No
  Sender: FDA-Public Use
  Company Number: US-AMGEN-KDL118931

PATIENT
  Sex: Female

DRUGS (6)
  1. PROCRIT [Suspect]
     Indication: ANAEMIA
     Dates: start: 20050201
  2. COUMADIN [Concomitant]
  3. PEPCID [Concomitant]
  4. TRAMADOL HCL [Concomitant]
  5. VITAMIN B-12 [Concomitant]
  6. MAXZIDE [Concomitant]

REACTIONS (3)
  - DYSPNOEA [None]
  - INSOMNIA [None]
  - PSYCHOMOTOR HYPERACTIVITY [None]
